FAERS Safety Report 18952427 (Version 1)
Quarter: 2021Q1

REPORT INFORMATION
  Report Type: Spontaneous
  Country: IN (occurrence: IN)
  Receive Date: 20210301
  Receipt Date: 20210301
  Transmission Date: 20210420
  Serious: Yes (Other)
  Sender: FDA-Public Use
  Company Number: IN-LUPIN LIMITED-2021-02267

PATIENT
  Age: 24 Year
  Sex: Male
  Weight: 58 kg

DRUGS (10)
  1. ISONIAZID. [Suspect]
     Active Substance: ISONIAZID
     Indication: TUBERCULOSIS
     Dosage: UNK
     Route: 065
  2. LINEZOLID. [Concomitant]
     Active Substance: LINEZOLID
     Indication: PRODUCT USED FOR UNKNOWN INDICATION
     Dosage: 600 MILLIGRAM, TID
     Route: 065
  3. KALMOZ [Concomitant]
     Indication: PRODUCT USED FOR UNKNOWN INDICATION
     Dosage: UNK
     Route: 065
  4. ETHIONAMIDE [Concomitant]
     Active Substance: ETHIONAMIDE
     Indication: TUBERCULOSIS
     Dosage: 250 MILLIGRAM, BID
     Route: 065
  5. MOXIFLOXACIN. [Concomitant]
     Active Substance: MOXIFLOXACIN
     Indication: PRODUCT USED FOR UNKNOWN INDICATION
     Dosage: UNK
     Route: 065
  6. LINEZOLID. [Concomitant]
     Active Substance: LINEZOLID
     Dosage: 600 MILLIGRAM, QD
     Route: 065
  7. COMBUNEX TAB UNCOATED 800 MG X 10 (/300) [Suspect]
     Active Substance: ETHAMBUTOL\ISONIAZID
     Indication: TUBERCULOSIS
     Dosage: UNK
     Route: 065
     Dates: start: 2020
  8. ETHAMBUTOL [Suspect]
     Active Substance: ETHAMBUTOL HYDROCHLORIDE
     Indication: TUBERCULOSIS
     Dosage: 800 MILLIGRAM
     Route: 065
  9. PYROLITE [Concomitant]
     Active Substance: TECHNETIUM TC-99M PYRO/TRIMETA PHOSPHATES
     Indication: PRODUCT USED FOR UNKNOWN INDICATION
     Dosage: UNK
     Route: 065
  10. OXYSHOT [Concomitant]
     Indication: SUPPLEMENTATION THERAPY
     Dosage: UNK
     Route: 065

REACTIONS (10)
  - Decreased appetite [Recovered/Resolved]
  - Vomiting [Recovered/Resolved]
  - Vascular compression [Not Recovered/Not Resolved]
  - Transfusion [Unknown]
  - Sleep disorder [Unknown]
  - Hypoaesthesia [Not Recovered/Not Resolved]
  - Feeling hot [Unknown]
  - Pain in extremity [Not Recovered/Not Resolved]
  - Swelling [Recovered/Resolved]
  - Product administration error [Unknown]

NARRATIVE: CASE EVENT DATE: 2020
